FAERS Safety Report 6686494-X (Version None)
Quarter: 2010Q2

REPORT INFORMATION
  Report Type: 
  Country: None (occurrence: None)
  Receive Date: 20100419
  Receipt Date: 20100406
  Transmission Date: 20101027
  Serious: Yes (Hospitalization)
  Sender: FDA-Public Use
  Company Number: FR-ROCHE-693208

PATIENT
  Sex: Female
  Weight: 78 kg

DRUGS (5)
  1. METHOXY POLYETHYLENE GLYCOL-EPOETIN BETA [Suspect]
     Indication: NEPHROGENIC ANAEMIA
     Route: 058
     Dates: start: 20090904, end: 20100106
  2. DIAMICRON [Concomitant]
     Route: 048
  3. KENZEN [Concomitant]
     Route: 048
  4. EUPRESSYL [Concomitant]
     Route: 048
  5. IDEOS [Concomitant]
     Dosage: OTHER INDICATION: CALCIUM DEFICIENCY
     Route: 048

REACTIONS (4)
  - ASTHENIA [None]
  - DUODENAL ULCER [None]
  - FALL [None]
  - GASTROINTESTINAL HAEMORRHAGE [None]
